FAERS Safety Report 25424295 (Version 1)
Quarter: 2025Q2

REPORT INFORMATION
  Report Type: Spontaneous
  Country: US (occurrence: US)
  Receive Date: 20250611
  Receipt Date: 20250611
  Transmission Date: 20250717
  Serious: No
  Sender: SANOFI AVENTIS
  Company Number: US-SA-2025SA162261

PATIENT
  Age: 53 Year
  Sex: Female

DRUGS (1)
  1. DUPIXENT [Suspect]
     Active Substance: DUPILUMAB
     Indication: Eosinophilic oesophagitis
     Route: 065

REACTIONS (10)
  - Nervous system disorder [Unknown]
  - Chest discomfort [Unknown]
  - Pain [Unknown]
  - Abdominal discomfort [Unknown]
  - Malaise [Unknown]
  - Condition aggravated [Unknown]
  - Discomfort [Unknown]
  - Fatigue [Unknown]
  - Benign neoplasm of skin [Unknown]
  - Insomnia [Unknown]
